FAERS Safety Report 5316929-6 (Version None)
Quarter: 2007Q2

REPORT INFORMATION
  Report Type: 
  Country: None (occurrence: None)
  Receive Date: 20070504
  Receipt Date: 20070423
  Transmission Date: 20071010
  Serious: Yes (Hospitalization)
  Sender: FDA-Public Use
  Company Number: US-ELI_LILLY_AND_COMPANY-US200704005444

PATIENT
  Age: 85 Year
  Sex: Female

DRUGS (2)
  1. FORTEO [Suspect]
     Indication: OSTEOPOROSIS
     Dosage: UNK, UNK
     Dates: start: 20050421, end: 20060113
  2. FORTEO [Suspect]
     Dosage: UNK, UNK
     Dates: start: 20060301

REACTIONS (7)
  - ACTIVITIES OF DAILY LIVING IMPAIRED [None]
  - ASTHENIA [None]
  - CARPAL TUNNEL SYNDROME [None]
  - EXOSTOSIS [None]
  - GENITAL LESION [None]
  - PAIN IN EXTREMITY [None]
  - URINARY INCONTINENCE [None]
